FAERS Safety Report 25746692 (Version 3)
Quarter: 2025Q3

REPORT INFORMATION
  Report Type: Report from Study
  Country: CA (occurrence: CA)
  Receive Date: 20250901
  Receipt Date: 20250911
  Transmission Date: 20251021
  Serious: Yes (Hospitalization)
  Sender: NOVARTIS
  Company Number: CA-002147023-NVSC2025CA134741

PATIENT
  Age: 72 Year
  Sex: Female

DRUGS (1)
  1. COSENTYX [Suspect]
     Active Substance: SECUKINUMAB
     Indication: Ankylosing spondylitis
     Dosage: 150 MG, QMO
     Route: 058
     Dates: start: 20250603, end: 20250826

REACTIONS (4)
  - Sepsis [Unknown]
  - Arthritis infective [Unknown]
  - Staphylococcal infection [Unknown]
  - Pain [Unknown]

NARRATIVE: CASE EVENT DATE: 20250728
